FAERS Safety Report 15781056 (Version 1)
Quarter: 2019Q1

REPORT INFORMATION
  Report Type: Report from Study
  Country: US (occurrence: US)
  Receive Date: 20190102
  Receipt Date: 20190102
  Transmission Date: 20190417
  Serious: Yes (Death)
  Sender: FDA-Public Use
  Company Number: US-UCBSA-2018056826

PATIENT
  Age: 51 Year
  Sex: Male

DRUGS (1)
  1. LACOSAMIDE. [Suspect]
     Active Substance: LACOSAMIDE
     Indication: SEIZURE
     Dosage: 200 MG, 2X/DAY (BID)
     Dates: end: 20181215

REACTIONS (2)
  - Myocardial infarction [Fatal]
  - Seizure [Fatal]

NARRATIVE: CASE EVENT DATE: 20181215
